FAERS Safety Report 12309947 (Version 1)
Quarter: 2016Q2

REPORT INFORMATION
  Report Type: Spontaneous
  Country: US (occurrence: None)
  Receive Date: 20160426
  Receipt Date: 20160426
  Transmission Date: 20160815
  Serious: Yes (Disabling)
  Sender: FDA-Public Use
  Company Number: None

PATIENT
  Age: 62 Year
  Sex: Female
  Weight: 71.67 kg

DRUGS (1)
  1. CELECOXIB CAP 200MG, 200 MG [Suspect]
     Active Substance: CELECOXIB
     Indication: OSTEOARTHRITIS
     Route: 048
     Dates: start: 20160311, end: 20160405

REACTIONS (3)
  - Product substitution issue [None]
  - Osteoarthritis [None]
  - Condition aggravated [None]

NARRATIVE: CASE EVENT DATE: 20160318
